FAERS Safety Report 8416352-1 (Version None)
Quarter: 2012Q2

REPORT INFORMATION
  Report Type: 
  Country: None (occurrence: None)
  Receive Date: 20120606
  Receipt Date: 20120522
  Transmission Date: 20120825
  Serious: Yes (Other)
  Sender: FDA-Public Use
  Company Number: JP-WATSON-2012-09097

PATIENT
  Age: 76 Year
  Sex: Male

DRUGS (1)
  1. ACYCLOVIR [Suspect]
     Indication: ENCEPHALITIS HERPES
     Dosage: UNK
     Route: 065

REACTIONS (3)
  - DEPRESSION [None]
  - CONDITION AGGRAVATED [None]
  - APATHY [None]
